FAERS Safety Report 6215572-4 (Version None)
Quarter: 2009Q2

REPORT INFORMATION
  Report Type: 
  Country: None (occurrence: None)
  Receive Date: 20090605
  Receipt Date: 20090602
  Transmission Date: 20091009
  Serious: Yes (Other)
  Sender: FDA-Public Use
  Company Number: FR-BRISTOL-MYERS SQUIBB COMPANY-14627103

PATIENT
  Age: 47 Year
  Sex: Female
  Weight: 56 kg

DRUGS (11)
  1. CISPLATIN [Suspect]
     Indication: NON-SMALL CELL LUNG CANCER STAGE IIIB
     Dosage: 3MAR09 WITHDRAWN FROM STUDY
     Route: 042
     Dates: start: 20090127, end: 20090127
  2. ALIMTA [Suspect]
     Indication: NON-SMALL CELL LUNG CANCER STAGE IIIB
     Dosage: 3MAR09 WITHDRAWN FROM STUDY
     Route: 042
     Dates: start: 20090127, end: 20090127
  3. FOLIC ACID [Concomitant]
     Indication: PROPHYLAXIS
     Dates: start: 20090119
  4. VITAMIN B-12 [Concomitant]
     Indication: PROPHYLAXIS
     Dates: start: 20090119, end: 20090119
  5. DEXAMETHASONE [Concomitant]
     Indication: PROPHYLAXIS
     Dates: start: 20090126, end: 20090128
  6. HYDROXYZINE [Concomitant]
     Indication: ANXIETY
     Dates: start: 20090115
  7. RAMIPRIL [Concomitant]
     Indication: HYPERTENSION
     Dates: start: 20090119
  8. PREDNISOLONE [Concomitant]
     Dosage: 10SEP08
     Dates: start: 20090119
  9. DIFFU-K [Concomitant]
     Indication: PROPHYLAXIS
     Dates: start: 20090119
  10. ESOMEPRAZOLE MAGNESIUM [Concomitant]
     Dates: start: 20090119
  11. DOCETAXEL [Concomitant]
     Dates: start: 20090311

REACTIONS (2)
  - ABORTION SPONTANEOUS [None]
  - PREGNANCY [None]
